FAERS Safety Report 19804595 (Version 1)
Quarter: 2021Q3

REPORT INFORMATION
  Report Type: Spontaneous
  Country: US (occurrence: US)
  Receive Date: 20210908
  Receipt Date: 20210908
  Transmission Date: 20211014
  Serious: No
  Sender: FDA-Public Use
  Company Number: US-PFIZER INC-2021685241

PATIENT
  Age: 38 Year
  Sex: Female
  Weight: 71.2 kg

DRUGS (5)
  1. KEYTRUDA [Concomitant]
     Active Substance: PEMBROLIZUMAB
     Dosage: UNK
  2. VITAMIN D3 [Concomitant]
     Active Substance: CHOLECALCIFEROL
     Dosage: 1250 UG
  3. LEVOTHYROXINE. [Concomitant]
     Active Substance: LEVOTHYROXINE
     Dosage: 100 UG
  4. INLYTA [Suspect]
     Active Substance: AXITINIB
     Indication: RENAL CANCER
     Dosage: 5 MG, 2X/DAY
     Route: 048
     Dates: start: 20201112, end: 202105
  5. ELIQUIS [Concomitant]
     Active Substance: APIXABAN
     Dosage: 2.5 MG

REACTIONS (2)
  - Asthenia [Recovering/Resolving]
  - Fatigue [Recovering/Resolving]
